FAERS Safety Report 6500905-1 (Version None)
Quarter: 2009Q4

REPORT INFORMATION
  Report Type: 
  Country: None (occurrence: None)
  Receive Date: 20091216
  Receipt Date: 20090414
  Transmission Date: 20100525
  Serious: No
  Sender: FDA-Public Use
  Company Number: A0778689A

PATIENT
  Age: 27 Year
  Sex: Male

DRUGS (2)
  1. NICOTINE POLACRILEX [Suspect]
     Indication: SMOKING CESSATION THERAPY
  2. WELLBUTRIN [Concomitant]

REACTIONS (5)
  - HEART RATE INCREASED [None]
  - HYPERHIDROSIS [None]
  - NERVOUSNESS [None]
  - PANIC ATTACK [None]
  - PANIC REACTION [None]
